FAERS Safety Report 24224680 (Version 2)
Quarter: 2024Q4

REPORT INFORMATION
  Report Type: Spontaneous
  Country: JP (occurrence: JP)
  Receive Date: 20240819
  Receipt Date: 20241223
  Transmission Date: 20250115
  Serious: Yes (Other)
  Sender: MERCK
  Company Number: JP-MSD-2408JPN001412J

PATIENT
  Age: 79 Year
  Sex: Male

DRUGS (1)
  1. KEYTRUDA [Suspect]
     Active Substance: PEMBROLIZUMAB
     Indication: Hypopharyngeal cancer
     Dosage: UNK
     Route: 065

REACTIONS (1)
  - Immune-mediated hepatic disorder [Recovering/Resolving]
